FAERS Safety Report 9357493 (Version 1)
Quarter: 2013Q2

REPORT INFORMATION
  Report Type: Spontaneous
  Country: US (occurrence: None)
  Receive Date: 20130617
  Receipt Date: 20130617
  Transmission Date: 20140414
  Serious: Yes (Death)
  Sender: FDA-Public Use
  Company Number: FK201302027

PATIENT
  Age: 58 Year
  Sex: Male

DRUGS (9)
  1. HYDRALAZINE [Suspect]
     Indication: PRODUCT USED FOR UNKNOWN INDICATION
     Route: 058
  2. LISINOPRIL (LISINOPRIL) [Concomitant]
  3. BUMETINIDE (TRIMEBUTINE) [Concomitant]
  4. ASPIRIN (ACETYLSALICYLIC ACID) [Concomitant]
  5. SPIRONOLACTONE (SPIRONOLACTONE) [Concomitant]
  6. CARVEDILOL (CARVEDILOL) [Concomitant]
  7. WARFARIN (WARFARIN) [Concomitant]
  8. METHYLPREDNISOLONE (METHYLPREDNISOLONE) [Concomitant]
  9. CYCLOPHOSPHAMIDE (CYCLOPHOSPHAMIDE) [Concomitant]

REACTIONS (3)
  - Pulmonary renal syndrome [None]
  - Anti-neutrophil cytoplasmic antibody positive vasculitis [None]
  - Continuous haemodiafiltration [None]
